FAERS Safety Report 4515661-6 (Version None)
Quarter: 2004Q4

REPORT INFORMATION
  Report Type: 
  Country: None (occurrence: None)
  Receive Date: 20041126
  Receipt Date: 20041112
  Transmission Date: 20050328
  Serious: Yes (Other)
  Sender: FDA-Public Use
  Company Number: HQWYE469315NOV04

PATIENT
  Age: 52 Year
  Sex: Female
  Weight: 53.57 kg

DRUGS (2)
  1. INDERAL [Suspect]
     Indication: MITRAL VALVE PROLAPSE
     Dosage: 20 MG 2X PER 1 DAY, ORAL
     Route: 048
  2. PROPRANOLOL [Suspect]
     Indication: MITRAL VALVE PROLAPSE
     Dosage: ORAL
     Route: 048

REACTIONS (5)
  - CEREBROVASCULAR ACCIDENT [None]
  - PERICARDIAL EFFUSION [None]
  - PHARMACEUTICAL PRODUCT COMPLAINT [None]
  - SKIN DISCOLOURATION [None]
  - SYSTEMIC LUPUS ERYTHEMATOSUS [None]
